FAERS Safety Report 9813027 (Version 1)
Quarter: 2014Q1

REPORT INFORMATION
  Report Type: Spontaneous
  Country: US (occurrence: None)
  Receive Date: 20140109
  Receipt Date: 20140109
  Transmission Date: 20141002
  Serious: Yes (Hospitalization)
  Sender: FDA-Public Use
  Company Number: None

PATIENT
  Age: 60 Year
  Sex: Male
  Weight: 83.46 kg

DRUGS (2)
  1. CREST PRO-HEALTH RINSE [Suspect]
     Indication: ANTI-INFECTIVE THERAPY
  2. CREST PRO-HEALTH RINSE [Suspect]
     Indication: GINGIVITIS

REACTIONS (1)
  - Parotitis [None]
